FAERS Safety Report 5329844-9 (Version None)
Quarter: 2007Q2

REPORT INFORMATION
  Report Type: 
  Country: None (occurrence: None)
  Receive Date: 20070521
  Receipt Date: 20070508
  Transmission Date: 20071010
  Serious: Yes (Hospitalization)
  Sender: FDA-Public Use
  Company Number: JP-ROCHE-437712

PATIENT
  Age: 14 Year
  Sex: Male
  Weight: 64 kg

DRUGS (2)
  1. TAMIFLU [Suspect]
     Route: 048
     Dates: start: 20060218, end: 20060218
  2. CALONAL [Concomitant]
     Route: 048
     Dates: start: 20060218, end: 20060218

REACTIONS (1)
  - ABNORMAL BEHAVIOUR [None]
